FAERS Safety Report 7315706-4 (Version None)
Quarter: 2011Q1

REPORT INFORMATION
  Report Type: 
  Country: None (occurrence: None)
  Receive Date: 20110225
  Receipt Date: 20100924
  Transmission Date: 20110831
  Serious: Yes (Other)
  Sender: FDA-Public Use
  Company Number: US-BAYER-201035066NA

PATIENT
  Sex: Female

DRUGS (2)
  1. EFFEXOR XR [Concomitant]
     Dosage: 150 MG, UNK
  2. YAZ [Suspect]
     Dosage: UNK UNK, UNK
     Route: 048
     Dates: start: 20080501, end: 20080905

REACTIONS (3)
  - POST CHOLECYSTECTOMY SYNDROME [None]
  - GALLBLADDER DISORDER [None]
  - ABDOMINAL PAIN UPPER [None]
